FAERS Safety Report 8595055 (Version 5)
Quarter: 2013Q2

REPORT INFORMATION
  Report Type: Report from Study
  Country: GB (occurrence: GB)
  Receive Date: 20120604
  Receipt Date: 20130419
  Transmission Date: 20140414
  Serious: Yes (Hospitalization, Other)
  Sender: FDA-Public Use
  Company Number: GB-JNJFOC-20120520772

PATIENT
  Sex: Female
  Weight: 111 kg

DRUGS (9)
  1. REMICADE [Suspect]
     Indication: COLITIS ULCERATIVE
     Route: 042
     Dates: start: 20110117
  2. REMICADE [Suspect]
     Indication: COLITIS ULCERATIVE
     Route: 042
     Dates: start: 20110221
  3. REMICADE [Suspect]
     Indication: COLITIS ULCERATIVE
     Route: 042
     Dates: start: 20110101
  4. OMEPRAZOLE [Concomitant]
     Indication: GASTROINTESTINAL DISORDER THERAPY
     Route: 048
  5. PIPERACILLIN TAZOBACTAM [Concomitant]
  6. AMOXICILLIN [Concomitant]
     Indication: PROPHYLAXIS
     Route: 042
     Dates: start: 20120515, end: 20120515
  7. ENOXAPARIN [Concomitant]
     Indication: EMBOLISM
     Route: 058
     Dates: start: 20120515, end: 20120615
  8. ONDANSETRON [Concomitant]
     Indication: ANTIEMETIC SUPPORTIVE CARE
     Route: 042
     Dates: start: 20120515, end: 20120515
  9. MORPHINE SULPHATE [Concomitant]
     Indication: ANALGESIC THERAPY
     Dates: start: 20120515, end: 20120515

REACTIONS (1)
  - Colitis ulcerative [Not Recovered/Not Resolved]
